FAERS Safety Report 6036442-0 (Version None)
Quarter: 2009Q1

REPORT INFORMATION
  Report Type: 
  Country: None (occurrence: None)
  Receive Date: 20090112
  Receipt Date: 20090105
  Transmission Date: 20090719
  Serious: Yes (Hospitalization, Disabling)
  Sender: FDA-Public Use
  Company Number: TPA2009A00011

PATIENT
  Age: 58 Year
  Sex: Female
  Weight: 127.0072 kg

DRUGS (10)
  1. ACTOS [Suspect]
     Indication: TYPE 2 DIABETES MELLITUS
     Dosage: 45 MG, 1 IN 1 D, PER ORAL
     Route: 048
  2. CAPOZIDE (HYDROCHLOROTHIAZIDE, CAPTOPRIL) [Concomitant]
  3. GLUCOPHAGE [Concomitant]
  4. BONIVA (ALL OTHER THERAPEUTIC PRODUCTS) [Concomitant]
  5. UNKNOWN MULTIVITAMIN (ERGOCALCIFEROL, ASCORBIC ACID, FOLIC ACID, THIAM [Concomitant]
  6. CALCIUM (CALCIUM) [Concomitant]
  7. FISH OIL (FISH OIL) [Concomitant]
  8. VITAMIN D [Concomitant]
  9. GLYBURIDE [Concomitant]
  10. PAXIL [Concomitant]

REACTIONS (8)
  - ANXIETY [None]
  - BLOOD GLUCOSE INCREASED [None]
  - FOOT FRACTURE [None]
  - FRACTURED SACRUM [None]
  - ILIUM FRACTURE [None]
  - INAPPROPRIATE SCHEDULE OF DRUG ADMINISTRATION [None]
  - OSTEOPOROSIS [None]
  - TREATMENT NONCOMPLIANCE [None]
